FAERS Safety Report 4320474-4 (Version None)
Quarter: 2004Q1

REPORT INFORMATION
  Report Type: 
  Country: None (occurrence: None)
  Receive Date: 20040322
  Receipt Date: 20001002
  Transmission Date: 20041129
  Serious: Yes (Hospitalization)
  Sender: FDA-Public Use
  Company Number: PHNU2000DE01883

PATIENT
  Age: 46 Year
  Sex: Male

DRUGS (2)
  1. DOPERGIN [Concomitant]
     Route: 065
  2. BROMOCRIPTINE MESYLATE [Suspect]
     Indication: PROLACTINOMA
     Route: 048
     Dates: start: 19900101, end: 20020401

REACTIONS (12)
  - ASBESTOSIS [None]
  - BIOPSY LUNG ABNORMAL [None]
  - DYSPNOEA [None]
  - FALL [None]
  - FEELING ABNORMAL [None]
  - LUNG DISORDER [None]
  - LUNG INFILTRATION [None]
  - MALAISE [None]
  - PLEURAL FIBROSIS [None]
  - PNEUMOTHORAX [None]
  - PULMONARY FIBROSIS [None]
  - SYNCOPE [None]
